FAERS Safety Report 4531075-7 (Version None)
Quarter: 2004Q4

REPORT INFORMATION
  Report Type: 
  Country: None (occurrence: None)
  Receive Date: 20041201
  Receipt Date: 20040823
  Transmission Date: 20050328
  Serious: Yes (Other)
  Sender: FDA-Public Use
  Company Number: US088146

PATIENT
  Sex: Male
  Weight: 78.1 kg

DRUGS (8)
  1. ENBREL [Suspect]
     Indication: RHEUMATOID ARTHRITIS
     Dosage: 25 MG, 2 IN 1 WEEKS, SC
     Route: 058
     Dates: start: 20000601, end: 20040806
  2. CELECOXIB [Concomitant]
  3. CYCLOBENZAPRINE HYDROCHLORIDE [Concomitant]
  4. TRAMADOL HCL [Concomitant]
  5. LISINOPRIL [Concomitant]
  6. ORPHENADRINE CITRATE [Concomitant]
  7. CALCIUM [Concomitant]
  8. MULTIVITAMIN [Concomitant]

REACTIONS (1)
  - FOLLICLE CENTRE LYMPHOMA, FOLLICULAR GRADE I, II, III [None]
